FAERS Safety Report 24330808 (Version 1)
Quarter: 2024Q3

REPORT INFORMATION
  Report Type: Spontaneous
  Country: US (occurrence: US)
  Receive Date: 20240918
  Receipt Date: 20240918
  Transmission Date: 20241017
  Serious: Yes (Hospitalization)
  Sender: STRIDES
  Company Number: US-STRIDES ARCOLAB LIMITED-2024SP011704

PATIENT
  Age: 35 Year
  Sex: Female

DRUGS (12)
  1. HALOPERIDOL [Suspect]
     Active Substance: HALOPERIDOL
     Indication: Schizoaffective disorder bipolar type
     Dosage: UNK
     Route: 065
     Dates: start: 201911, end: 20191114
  2. PALIPERIDONE [Suspect]
     Active Substance: PALIPERIDONE
     Indication: Schizoaffective disorder bipolar type
     Dosage: UNK
     Route: 048
     Dates: start: 20190918
  3. PALIPERIDONE [Suspect]
     Active Substance: PALIPERIDONE
     Dosage: 234 MILLIGRAM (LOADING DOSE)
     Route: 030
     Dates: start: 20190920, end: 20190920
  4. PALIPERIDONE [Suspect]
     Active Substance: PALIPERIDONE
     Dosage: 156 MILLIGRAM (LOADING DOSE)
     Route: 030
     Dates: start: 20190924, end: 20190924
  5. PALIPERIDONE [Suspect]
     Active Substance: PALIPERIDONE
     Dosage: 156 MILLIGRAM (MISSED DOSE WAS ADMINISTERED)
     Route: 030
     Dates: start: 20191105, end: 20191105
  6. PALIPERIDONE [Suspect]
     Active Substance: PALIPERIDONE
     Dosage: 234 MILLIGRAM (LOADING DOSE) (RE-LOADED)
     Route: 030
     Dates: start: 20191108, end: 20191108
  7. PALIPERIDONE [Suspect]
     Active Substance: PALIPERIDONE
     Dosage: 156 MILLIGRAM (LOADING DOSE) (RE-LOADED)
     Route: 030
     Dates: start: 20191111, end: 20191111
  8. LORAZEPAM [Suspect]
     Active Substance: LORAZEPAM
     Indication: Schizoaffective disorder bipolar type
     Dosage: UNK
     Route: 065
     Dates: start: 20190918, end: 20191114
  9. QUETIAPINE [Suspect]
     Active Substance: QUETIAPINE
     Indication: Schizoaffective disorder bipolar type
     Dosage: UNK
     Route: 065
     Dates: start: 201909
  10. QUETIAPINE [Suspect]
     Active Substance: QUETIAPINE
     Dosage: 600 MILLIGRAM, QD
     Route: 065
     Dates: start: 20191109, end: 20191114
  11. DIVALPROEX SODIUM [Suspect]
     Active Substance: DIVALPROEX SODIUM
     Indication: Schizoaffective disorder bipolar type
     Dosage: UNK
     Route: 065
     Dates: start: 201909, end: 20191114
  12. OLANZAPINE [Suspect]
     Active Substance: OLANZAPINE
     Indication: Schizoaffective disorder bipolar type
     Dosage: UNK
     Route: 030
     Dates: start: 201911, end: 20191114

REACTIONS (3)
  - Multiple drug therapy [Unknown]
  - Tardive dyskinesia [Recovered/Resolved]
  - Treatment failure [Unknown]

NARRATIVE: CASE EVENT DATE: 20191101
